FAERS Safety Report 13045726 (Version 1)
Quarter: 2016Q4

REPORT INFORMATION
  Report Type: Spontaneous
  Country: US (occurrence: US)
  Receive Date: 20161220
  Receipt Date: 20161220
  Transmission Date: 20170207
  Serious: Yes (Hospitalization, Other)
  Sender: FDA-Public Use
  Company Number: None

PATIENT
  Age: 36 Year
  Sex: Female

DRUGS (6)
  1. AMITRIPTYLINE [Suspect]
     Active Substance: AMITRIPTYLINE
     Indication: INSOMNIA
     Dosage: AMITRIPTYLINE 25 MG 1 TABLET AT BEDTIME ORAL
     Route: 048
     Dates: start: 20161121
  2. LYRICA [Concomitant]
     Active Substance: PREGABALIN
  3. NORCO [Concomitant]
     Active Substance: ACETAMINOPHEN\HYDROCODONE BITARTRATE
  4. TRI-LINYAH [Concomitant]
     Active Substance: ETHINYL ESTRADIOL\NORGESTIMATE
  5. BACLOFEN. [Concomitant]
     Active Substance: BACLOFEN
  6. DULOXETINE. [Suspect]
     Active Substance: DULOXETINE
     Indication: DEPRESSION
     Dosage: DULOXETINE DR 60MG 1 CAP QDAILY ORAL
     Route: 048
     Dates: start: 20160109

REACTIONS (3)
  - Headache [None]
  - Serotonin syndrome [None]
  - Drug interaction [None]

NARRATIVE: CASE EVENT DATE: 20161201
